FAERS Safety Report 4314445-1 (Version None)
Quarter: 2004Q1

REPORT INFORMATION
  Report Type: 
  Country: None (occurrence: None)
  Receive Date: 20040308
  Receipt Date: 20040226
  Transmission Date: 20041129
  Serious: Yes (Life-Threatening)
  Sender: FDA-Public Use
  Company Number: TNZFR200400019

PATIENT
  Age: 68 Year
  Sex: Female
  Weight: 67 kg

DRUGS (6)
  1. INNOHEP [Suspect]
     Indication: PHLEBITIS
     Dosage: 10000 IU (10000 IU, 1 IN 1 D), SUBCUTANEOUS
     Route: 058
     Dates: start: 20031113, end: 20031126
  2. ALLOPURINOL [Concomitant]
  3. PAROXETINE HCL [Concomitant]
  4. CAPTOPRIL [Concomitant]
  5. HYDREA [Concomitant]
  6. VERCYTE [Concomitant]

REACTIONS (11)
  - ABDOMINAL PAIN [None]
  - ANAEMIA [None]
  - DIALYSIS [None]
  - HAEMATOMA [None]
  - HAEMOGLOBIN S DECREASED [None]
  - HYPOVOLAEMIA [None]
  - INFECTION [None]
  - RENAL FAILURE ACUTE [None]
  - RENAL IMPAIRMENT [None]
  - SHOCK [None]
  - VOMITING [None]
